FAERS Safety Report 5829316-9 (Version None)
Quarter: 2008Q3

REPORT INFORMATION
  Report Type: 
  Country: None (occurrence: None)
  Receive Date: 20080731
  Receipt Date: 20080417
  Transmission Date: 20090109
  Serious: No
  Sender: FDA-Public Use
  Company Number: US-BOEHRINGER INGELHEIM GMBH, GERMANY-2007-BP-18242BP

PATIENT
  Sex: Male
  Weight: 95 kg

DRUGS (4)
  1. MIRAPEX [Suspect]
     Indication: PARKINSON'S DISEASE
     Dosage: FROM 1.5 MG THREE TIMES DAILY TAPERED DOWN TO BE DISCONTINUED
     Dates: start: 19940620, end: 20040201
  2. ELDEPRYL [Concomitant]
     Indication: PARKINSON'S DISEASE
     Dosage: TWICE DAILY
     Dates: start: 19990601, end: 20000101
  3. SINEMET [Concomitant]
     Indication: PARKINSON'S DISEASE
     Dosage: 25/100 MG 1 TAB, THREE TIMES DAILY
     Dates: start: 20000314
  4. AMANTADINE HCL [Concomitant]
     Dosage: THREE TIMES DAILY
     Dates: start: 19970601

REACTIONS (6)
  - BINGE EATING [None]
  - EMOTIONAL DISTRESS [None]
  - HYPERSEXUALITY [None]
  - OBSESSIVE-COMPULSIVE DISORDER [None]
  - PATHOLOGICAL GAMBLING [None]
  - WEIGHT INCREASED [None]
